FAERS Safety Report 5195427-7 (Version None)
Quarter: 2006Q4

REPORT INFORMATION
  Report Type: 
  Country: None (occurrence: None)
  Receive Date: 20061025
  Receipt Date: 20060602
  Transmission Date: 20070319
  Serious: Yes (Other)
  Sender: FDA-Public Use
  Company Number: 1713747 / 2006 / 000010

PATIENT
  Sex: Female

DRUGS (1)
  1. DEFLEX 1.5% DEXTROSE [Suspect]
     Indication: RENAL FAILURE CHRONIC
     Dosage: INTRAPERITONEAL
     Route: 033
     Dates: start: 20060527

REACTIONS (1)
  - INFUSION SITE PAIN [None]
